FAERS Safety Report 7764739-2 (Version None)
Quarter: 2011Q3

REPORT INFORMATION
  Report Type: 
  Country: None (occurrence: None)
  Receive Date: 20110921
  Receipt Date: 20110921
  Transmission Date: 20111222
  Serious: Yes (Life-Threatening)
  Sender: FDA-Public Use
  Company Number: None

PATIENT
  Age: 73 Year
  Sex: Female
  Weight: 73 kg

DRUGS (10)
  1. BENAZEPRIL HYDROCHLORIDE [Concomitant]
     Route: 048
  2. DIPHENHYDRAMINE HCL [Concomitant]
     Route: 048
  3. ONDANSETRON [Concomitant]
     Route: 042
  4. FLAGYL [Concomitant]
     Route: 042
  5. HYDROCHLOROTHIAZIDE [Concomitant]
     Route: 048
  6. CIPROFLOXACIN [Concomitant]
     Route: 042
  7. PANTOPRAZOLE [Suspect]
     Indication: EROSIVE OESOPHAGITIS
     Dosage: 40 MG
     Route: 040
     Dates: start: 20110221, end: 20110224
  8. PREDNISONE [Concomitant]
     Route: 048
  9. ACETAMINOPHEN [Concomitant]
     Route: 048
  10. CARAFATE [Concomitant]
     Route: 048

REACTIONS (2)
  - GASTROINTESTINAL HAEMORRHAGE [None]
  - PLATELET COUNT DECREASED [None]
